FAERS Safety Report 5028689-7 (Version None)
Quarter: 2006Q2

REPORT INFORMATION
  Report Type: 
  Country: None (occurrence: None)
  Receive Date: 20060619
  Receipt Date: 20060607
  Transmission Date: 20061013
  Serious: Yes (Death)
  Sender: FDA-Public Use
  Company Number: CA-JNJFOC-20050102230

PATIENT
  Sex: Male

DRUGS (2)
  1. DURAGESIC-100 [Suspect]
     Indication: DRUG USE FOR UNKNOWN INDICATION
     Route: 062
  2. TYLENOL W/ CODEINE NO. 3 [Concomitant]
     Indication: PROCEDURAL PAIN
     Route: 048

REACTIONS (5)
  - ASPHYXIA [None]
  - ASPIRATION [None]
  - DRUG TOXICITY [None]
  - INTENTIONAL DRUG MISUSE [None]
  - NARCOTIC INTOXICATION [None]
